FAERS Safety Report 9206711 (Version 1)
Quarter: 2013Q1

REPORT INFORMATION
  Report Type: Spontaneous
  Country: US (occurrence: None)
  Receive Date: 20120731
  Receipt Date: 20120731
  Transmission Date: 20140127
  Serious: Yes (Other)
  Sender: FDA-Public Use
  Company Number: AMAG201203022

PATIENT
  Age: 41 Year
  Sex: Female
  Weight: 100.8 kg

DRUGS (3)
  1. FERAHEME (FERUMOXYTOL) INJECTION, 510MG [Suspect]
     Dosage: SINGLE
     Route: 042
     Dates: start: 20120409, end: 20120409
  2. MULTIVITAMIN (VITAMIN NOS) [Concomitant]
  3. VITAMIN B 12 INJECTION (COBAMAMIDE) [Concomitant]

REACTIONS (8)
  - Hypersensitivity [None]
  - Flushing [None]
  - Lip swelling [None]
  - Hyperhidrosis [None]
  - Urticaria [None]
  - Dyspnoea [None]
  - Anxiety [None]
  - Erythema [None]
